FAERS Safety Report 8698991 (Version 8)
Quarter: 2012Q4

REPORT INFORMATION
  Report Type: 
  Country: US (occurrence: US)
  Receive Date: 20120802
  Receipt Date: 20121206
  Transmission Date: 20130627
  Serious: Yes (Death, Hospitalization, Disabling, Other)
  Sender: FDA-Public Use
  Company Number: US-ALLERGAN-1210238US

PATIENT
  Age: 93 Year
  Sex: Female

DRUGS (12)
  1. BOTOX� [Suspect]
     Indication: SPASMODIC TORTICOLLIS
     Dosage: 100 UNITS, single
     Route: 030
     Dates: start: 20090604, end: 20090604
  2. BOTOX� [Suspect]
     Indication: DROOLING
     Dosage: 100 UNITS, single
     Route: 030
     Dates: start: 20090730, end: 20090730
  3. BOTOX� [Suspect]
     Indication: LEG SPASTICITY
     Dosage: 200 UNITS, single
     Route: 030
     Dates: start: 20090916, end: 20090916
  4. BOTOX� [Suspect]
     Dosage: 250 UNITS, single
     Route: 030
     Dates: start: 20091217, end: 20091217
  5. BOTOX� [Suspect]
     Dosage: 100 UNITS, single
     Route: 030
     Dates: start: 20090604, end: 20090604
  6. BOTOX� [Suspect]
     Dosage: 50 UNITS, single
     Route: 030
     Dates: start: 20090916, end: 20090916
  7. BOTOX� [Suspect]
     Dosage: 25 UNITS, single
     Dates: start: 20090916, end: 20090916
  8. BOTOX� [Suspect]
     Dosage: 100 UNITS, single
     Route: 030
     Dates: start: 20091217, end: 20091217
  9. BOTOX� [Suspect]
     Dosage: 20 UNITS, single
     Route: 030
     Dates: start: 20091217, end: 20091217
  10. PLAVIX                             /01220701/ [Concomitant]
     Indication: CAROTID ARTERY STENOSIS
     Dosage: UNK
     Dates: start: 2006
  11. ZOCOR [Concomitant]
  12. TOPROL [Concomitant]
     Indication: HYPERTENSION

REACTIONS (11)
  - Neuromyopathy [Fatal]
  - Respiratory failure [Not Recovered/Not Resolved]
  - Pneumonia aspiration [Unknown]
  - Dysphagia [Unknown]
  - Atrial fibrillation [Unknown]
  - Haemothorax [Unknown]
  - Atelectasis [Unknown]
  - Pneumonia [Unknown]
  - Atelectasis [Unknown]
  - Pulmonary oedema [Unknown]
  - Cardiac failure congestive [Unknown]
